FAERS Safety Report 5131293-3 (Version None)
Quarter: 2006Q4

REPORT INFORMATION
  Report Type: 
  Country: None (occurrence: None)
  Receive Date: 20061020
  Receipt Date: 20060828
  Transmission Date: 20070319
  Serious: Yes (Death, Life-Threatening, Hospitalization, Congenital Anomaly, Other)
  Sender: FDA-Public Use
  Company Number: PHBS2006JP13183

PATIENT
  Age: 1 Day
  Sex: Male

DRUGS (3)
  1. DIOVAN [Suspect]
     Dosage: UNK, UNK
     Route: 064
     Dates: start: 20050401, end: 20060825
  2. CONIEL [Concomitant]
     Route: 064
     Dates: start: 20050401, end: 20060825
  3. EUGLUCON [Concomitant]
     Route: 064
     Dates: start: 20050401, end: 20060825

REACTIONS (28)
  - ALANINE AMINOTRANSFERASE INCREASED [None]
  - ANURIA [None]
  - ASPARTATE AMINOTRANSFERASE INCREASED [None]
  - ATRIOVENTRICULAR BLOCK [None]
  - BLOOD CREATINE PHOSPHOKINASE INCREASED [None]
  - BLOOD CREATININE INCREASED [None]
  - BLOOD LACTATE DEHYDROGENASE INCREASED [None]
  - BLOOD UREA INCREASED [None]
  - BRADYCARDIA [None]
  - CARDIAC ARREST [None]
  - DRUG EXPOSURE DURING PREGNANCY [None]
  - GAMMA-GLUTAMYLTRANSFERASE INCREASED [None]
  - HEART RATE DECREASED [None]
  - HEPATIC FUNCTION ABNORMAL [None]
  - HYPERKALAEMIA [None]
  - HYPOTENSION [None]
  - KIDNEY ENLARGEMENT [None]
  - METABOLIC ACIDOSIS [None]
  - MULTIPLE CONGENITAL ABNORMALITIES [None]
  - NEONATAL ASPHYXIA [None]
  - NEONATAL DISORDER [None]
  - NEONATAL RESPIRATORY FAILURE [None]
  - NEPHROCALCINOSIS [None]
  - PULMONARY HAEMORRHAGE [None]
  - PULMONARY HYPOPLASIA [None]
  - RENAL APLASIA [None]
  - RENAL FAILURE [None]
  - RENAL VEIN THROMBOSIS [None]
